FAERS Safety Report 7457308-5 (Version None)
Quarter: 2011Q2

REPORT INFORMATION
  Report Type: 
  Country: None (occurrence: None)
  Receive Date: 20110504
  Receipt Date: 20110427
  Transmission Date: 20111010
  Serious: Yes (Other)
  Sender: FDA-Public Use
  Company Number: US-AMGEN-USASP2011022094

PATIENT
  Sex: Female

DRUGS (1)
  1. PROLIA [Suspect]
     Indication: PRODUCT USED FOR UNKNOWN INDICATION
     Dosage: UNK UNK, Q6MO
     Dates: start: 20100901

REACTIONS (5)
  - DYSPHAGIA [None]
  - PRURITUS [None]
  - CHOKING [None]
  - SKIN EXFOLIATION [None]
  - DYSPNOEA [None]
